FAERS Safety Report 8378480-9 (Version None)
Quarter: 2012Q2

REPORT INFORMATION
  Report Type: 
  Country: None (occurrence: None)
  Receive Date: 20120522
  Receipt Date: 20110601
  Transmission Date: 20120825
  Serious: No
  Sender: FDA-Public Use
  Company Number: US-ASTRAZENECA-2011SE34444

PATIENT
  Age: 66 Year
  Sex: Female

DRUGS (2)
  1. PRILOSEC [Suspect]
     Route: 048
  2. ALLEGRA [Interacting]
     Indication: HYPERSENSITIVITY
     Route: 048
     Dates: start: 20110101

REACTIONS (3)
  - COUGH [None]
  - DRUG INEFFECTIVE [None]
  - INHIBITORY DRUG INTERACTION [None]
